FAERS Safety Report 8286586-8 (Version None)
Quarter: 2012Q2

REPORT INFORMATION
  Report Type: 
  Country: None (occurrence: None)
  Receive Date: 20120416
  Receipt Date: 20120406
  Transmission Date: 20120825
  Serious: Yes (Hospitalization)
  Sender: FDA-Public Use
  Company Number: US-BAYER-2011-118952

PATIENT
  Age: 29 Year
  Sex: Female
  Weight: 61.224 kg

DRUGS (3)
  1. YAZ [Suspect]
     Indication: ACNE
     Dosage: UNK
     Dates: start: 20050101, end: 20060101
  2. PROZAC [Concomitant]
     Indication: DEPRESSION
     Dosage: UNK UNK, PRN
     Dates: start: 20020101, end: 20110101
  3. YASMIN [Suspect]
     Indication: ACNE
     Dosage: UNK
     Dates: start: 20070801, end: 20091101

REACTIONS (4)
  - PAIN [None]
  - EMOTIONAL DISTRESS [None]
  - INJURY [None]
  - PULMONARY EMBOLISM [None]
